FAERS Safety Report 11589360 (Version 1)
Quarter: 2015Q4

REPORT INFORMATION
  Report Type: Report from Study
  Country: US (occurrence: US)
  Receive Date: 20151002
  Receipt Date: 20151002
  Transmission Date: 20160304
  Serious: No
  Sender: FDA-Public Use
  Company Number: US-ABBVIE-15P-163-1418862-00

PATIENT
  Age: 34 Year
  Sex: Female

DRUGS (4)
  1. REYATAZ [Suspect]
     Active Substance: ATAZANAVIR SULFATE
     Indication: ANTIRETROVIRAL THERAPY
     Dosage: TAKING AT CONCEPTION
     Route: 048
     Dates: start: 20141104
  2. EMTRICITABINE W/TENOFOVIR DISOPROXIL FUMARATE [Suspect]
     Active Substance: EMTRICITABINE\TENOFOVIR DISOPROXIL
     Indication: ANTIRETROVIRAL THERAPY
     Dosage: TAKING AT CONCEPTION
     Route: 048
     Dates: start: 20141104
  3. RITONAVIR. [Suspect]
     Active Substance: RITONAVIR
     Indication: ANTIRETROVIRAL THERAPY
     Dosage: TAKING AT CONCEPTION
     Route: 048
     Dates: start: 20141104
  4. EMTRICITABINE W/RILPIVIRINE/TENOFOVIR DISOPRO [Suspect]
     Active Substance: EMTRICITABINE\RILPIVIRINE\TENOFOVIR DISOPROXIL FUMARATE
     Indication: ANTIRETROVIRAL THERAPY
     Route: 048
     Dates: end: 20141104

REACTIONS (3)
  - Pregnancy with advanced maternal age [Unknown]
  - Exposure during pregnancy [Unknown]
  - Gestational diabetes [Unknown]
